FAERS Safety Report 12671578 (Version 2)
Quarter: 2016Q4

REPORT INFORMATION
  Report Type: Report from Study
  Country: EC (occurrence: EC)
  Receive Date: 20160822
  Receipt Date: 20161018
  Transmission Date: 20170207
  Serious: No
  Sender: FDA-Public Use
  Company Number: EC-ROCHE-1806569

PATIENT
  Age: 75 Year
  Sex: Female

DRUGS (1)
  1. HERCEPTIN [Suspect]
     Active Substance: TRASTUZUMAB
     Indication: BREAST CANCER
     Route: 065
     Dates: start: 20160609

REACTIONS (2)
  - Bradycardia [Recovering/Resolving]
  - Breast oedema [Unknown]

NARRATIVE: CASE EVENT DATE: 201608
